FAERS Safety Report 13368891 (Version 1)
Quarter: 2017Q1

REPORT INFORMATION
  Report Type: Spontaneous
  Country: US (occurrence: US)
  Receive Date: 20170324
  Receipt Date: 20170324
  Transmission Date: 20170429
  Serious: Yes (Death)
  Sender: FDA-Public Use
  Company Number: US-PFIZER INC-2016380190

PATIENT
  Age: 70 Year
  Sex: Female

DRUGS (12)
  1. LASIX [Concomitant]
     Active Substance: FUROSEMIDE
     Dosage: 20 MG, AS NEEDED  (0.5 TAB)
     Dates: start: 20130614
  2. AZOPT [Concomitant]
     Active Substance: BRINZOLAMIDE
     Dosage: 2 DROPS DAILY
     Dates: start: 20160423
  3. LYRICA [Suspect]
     Active Substance: PREGABALIN
     Indication: MYALGIA
     Dosage: 75 MG, 3X/DAY (1 CAP)
     Route: 048
     Dates: start: 20140604
  4. IRBESARTAN. [Concomitant]
     Active Substance: IRBESARTAN
     Dosage: 150 MG, DAILY (1 TAB)
     Dates: start: 20160801
  5. LYRICA [Suspect]
     Active Substance: PREGABALIN
     Indication: MYOSITIS
  6. CELEXA [Concomitant]
     Active Substance: CITALOPRAM HYDROBROMIDE
     Dosage: 40 MG, DAILY (1 TAB)
     Dates: start: 20130911
  7. METHADONE [Concomitant]
     Active Substance: METHADONE HYDROCHLORIDE
     Dosage: 10 MG, 3X/DAY (1 TAB)
     Dates: start: 20140604
  8. PREDNISONE. [Concomitant]
     Active Substance: PREDNISONE
     Dosage: 9 MG, DAILY
     Dates: start: 20140604
  9. PRILOSEC [Concomitant]
     Active Substance: OMEPRAZOLE MAGNESIUM
     Dosage: 40 MG, 1X/DAY (ONCE DAILY)
     Dates: start: 20130412
  10. DULERA [Concomitant]
     Active Substance: FORMOTEROL FUMARATE DIHYDRATE\MOMETASONE FUROATE
     Dosage: 2 DF, 2X/DAY [FORMOTEROL FUMARATE-5 MCG]/[MOMETASONE FUROATE-100 MCG]
     Dates: start: 20120828
  11. BYSTOLIC [Concomitant]
     Active Substance: NEBIVOLOL HYDROCHLORIDE
     Dosage: 2.5 MG, DAILY (1 TAB)
     Dates: start: 20110819
  12. PREDNISOLONE. [Concomitant]
     Active Substance: PREDNISOLONE
     Dosage: 4 DROPS DAILY
     Dates: start: 20161020

REACTIONS (2)
  - Death [Fatal]
  - Product use issue [Unknown]

NARRATIVE: CASE EVENT DATE: 20140604
